FAERS Safety Report 6153325-6 (Version None)
Quarter: 2009Q2

REPORT INFORMATION
  Report Type: 
  Country: None (occurrence: None)
  Receive Date: 20090409
  Receipt Date: 20090326
  Transmission Date: 20091009
  Serious: Yes (Congenital Anomaly)
  Sender: FDA-Public Use
  Company Number: 2009S1005416

PATIENT
  Sex: Male

DRUGS (3)
  1. FLUOXETINE [Suspect]
     Indication: DEPRESSION
     Dosage: 20 MG; TRANSPLACENTAL; 40 MG;  TRANSPLACENTAL
     Route: 064
     Dates: start: 20030821, end: 20060808
  2. FLUOXETINE [Suspect]
     Indication: DEPRESSION
     Dosage: 20 MG; TRANSPLACENTAL; 40 MG;  TRANSPLACENTAL
     Route: 064
     Dates: start: 20060808
  3. PANTOPRAZOLE SODIUM [Concomitant]

REACTIONS (3)
  - MATERNAL ALCOHOL USE [None]
  - MATERNAL DRUGS AFFECTING FOETUS [None]
  - RENAL DYSPLASIA [None]
